FAERS Safety Report 5821483-6 (Version None)
Quarter: 2008Q3

REPORT INFORMATION
  Report Type: 
  Country: None (occurrence: None)
  Receive Date: 20080724
  Receipt Date: 20080724
  Transmission Date: 20090109
  Serious: Yes (Hospitalization)
  Sender: FDA-Public Use
  Company Number: B0530465A

PATIENT
  Age: 66 Year
  Sex: Male

DRUGS (1)
  1. VALTREX [Suspect]
     Indication: HERPES ZOSTER
     Dosage: 1000MG THREE TIMES PER DAY
     Route: 048
     Dates: start: 20080711, end: 20080715

REACTIONS (4)
  - ANURIA [None]
  - DEPRESSED LEVEL OF CONSCIOUSNESS [None]
  - RENAL DISORDER [None]
  - STUPOR [None]
